FAERS Safety Report 10475048 (Version 4)
Quarter: 2015Q1

REPORT INFORMATION
  Report Type: Spontaneous
  Country: IT (occurrence: IT)
  Receive Date: 20140925
  Receipt Date: 20150119
  Transmission Date: 20150720
  Serious: Yes (Hospitalization)
  Sender: FDA-Public Use
  Company Number: IT-009507513-1409ITA007897

PATIENT
  Age: 52 Year
  Sex: Male

DRUGS (7)
  1. DAPAROX [Suspect]
     Active Substance: PAROXETINE HYDROCHLORIDE
     Indication: DRUG ABUSE
     Dosage: 30 DROPS, TOTAL
     Route: 048
     Dates: start: 20140902, end: 20140902
  2. TRILAFON [Suspect]
     Active Substance: PERPHENAZINE
     Indication: DRUG ABUSE
     Dosage: 20 MG, ONCE
     Route: 048
     Dates: start: 20140902, end: 20140902
  3. DAPAROX [Suspect]
     Active Substance: PAROXETINE HYDROCHLORIDE
     Dosage: 20 DROPS, UNK
     Route: 048
     Dates: start: 201409
  4. TRILAFON [Suspect]
     Active Substance: PERPHENAZINE
     Dosage: 3 TABLETS DAILY, TO BE TAKEN BEFORE GOING TO SLEEP
     Route: 048
     Dates: start: 201409
  5. VALDORM [Concomitant]
     Active Substance: VALERIAN
     Dosage: 30 MG, UNK
  6. DAPAROX [Suspect]
     Active Substance: PAROXETINE HYDROCHLORIDE
     Dosage: 10 DROPS, TO BE TAKEN IN THE MORNING FOR 5 DAYS
     Route: 048
     Dates: start: 201409, end: 201409
  7. RIVOTRIL [Concomitant]
     Active Substance: CLONAZEPAM
     Dosage: FORMULATION: ORAL DROPS, STRENGTH: 2.5 MG/ML

REACTIONS (2)
  - Drug abuse [Recovered/Resolved]
  - Sopor [Recovered/Resolved]

NARRATIVE: CASE EVENT DATE: 20140902
